FAERS Safety Report 10142251 (Version 1)
Quarter: 2014Q2

REPORT INFORMATION
  Report Type: Spontaneous
  Country: US (occurrence: US)
  Receive Date: 20140430
  Receipt Date: 20140430
  Transmission Date: 20141212
  Serious: Yes (Other)
  Sender: FDA-Public Use
  Company Number: US-ROCHE-1386929

PATIENT
  Sex: Male

DRUGS (6)
  1. KLONOPIN [Suspect]
     Indication: DEPRESSION
     Route: 065
  2. KLONOPIN [Suspect]
     Indication: ANXIETY
  3. ZETIA [Concomitant]
     Dosage: EVERY MORNING
     Route: 065
  4. ASPIRIN [Concomitant]
     Route: 065
  5. TRICOR (UNITED STATES) [Concomitant]
     Route: 065
  6. LIPITOR [Concomitant]
     Dosage: EVERY NIGHT
     Route: 065

REACTIONS (2)
  - Cardiac operation [Unknown]
  - Drug ineffective [Unknown]
